FAERS Safety Report 16982444 (Version 8)
Quarter: 2020Q2

REPORT INFORMATION
  Report Type: Report from Study
  Country: CO (occurrence: CO)
  Receive Date: 20191101
  Receipt Date: 20200616
  Transmission Date: 20200713
  Serious: Yes (Hospitalization, Other)
  Sender: FDA-Public Use
  Company Number: NVSC2019CO020983

PATIENT
  Age: 74 Year
  Sex: Female
  Weight: 85 kg

DRUGS (5)
  1. EXEMESTIN [Suspect]
     Active Substance: EXEMESTANE
     Indication: BREAST CANCER
     Dosage: 25 MG, QD
     Route: 048
  2. LOPRESOR [Suspect]
     Active Substance: METOPROLOL
     Indication: HYPERTENSION
     Dosage: 50 MG, Q12H
     Route: 048
  3. AFINITOR [Suspect]
     Active Substance: EVEROLIMUS
     Indication: BREAST CANCER
     Dosage: 10 MG, QD
     Route: 048
     Dates: start: 201909, end: 201909
  4. QUETIAPINE. [Concomitant]
     Active Substance: QUETIAPINE
     Indication: INSOMNIA
     Dosage: UNK, QD
     Route: 048
  5. AFINITOR [Suspect]
     Active Substance: EVEROLIMUS
     Dosage: 5 MG
     Route: 048

REACTIONS (21)
  - Hormone level abnormal [Unknown]
  - Drug intolerance [Recovering/Resolving]
  - Abdominal discomfort [Unknown]
  - Lymphoedema [Unknown]
  - White blood cell count decreased [Unknown]
  - Back pain [Unknown]
  - Depressed mood [Unknown]
  - Decreased immune responsiveness [Unknown]
  - Pain [Unknown]
  - Gait inability [Unknown]
  - Ascites [Recovering/Resolving]
  - Ageusia [Unknown]
  - Decreased appetite [Unknown]
  - Headache [Unknown]
  - Platelet count decreased [Unknown]
  - Pleural effusion [Recovering/Resolving]
  - Respiratory distress [Unknown]
  - Anxiety [Unknown]
  - Inappropriate schedule of product administration [Unknown]
  - Urinary tract infection [Unknown]
  - Dysgeusia [Unknown]

NARRATIVE: CASE EVENT DATE: 201910
